FAERS Safety Report 9632274 (Version 1)
Quarter: 2013Q4

REPORT INFORMATION
  Report Type: Report from Study
  Country: BR (occurrence: BR)
  Receive Date: 20131018
  Receipt Date: 20131018
  Transmission Date: 20140711
  Serious: Yes (Hospitalization, Other)
  Sender: FDA-Public Use
  Company Number: PHHY2013BR117626

PATIENT
  Sex: Female
  Weight: 75 kg

DRUGS (2)
  1. DIOVAN AMLO FIX [Suspect]
     Indication: HYPERTENSION
     Dosage: 1 DF(320/5MG), DAILY
     Route: 048
  2. DORFLEX [Concomitant]
     Indication: PAIN
     Dosage: UNK UKN, PRN

REACTIONS (1)
  - Nosocomial infection [Recovered/Resolved]
